FAERS Safety Report 18269743 (Version 2)
Quarter: 2020Q3

REPORT INFORMATION
  Report Type: Spontaneous
  Country: US (occurrence: US)
  Receive Date: 20200915
  Receipt Date: 20200924
  Transmission Date: 20201103
  Serious: Yes (Death, Other)
  Sender: FDA-Public Use
  Company Number: US-GILEAD-2020-0494929

PATIENT
  Age: 81 Year
  Sex: Male
  Weight: 80.68 kg

DRUGS (21)
  1. ROCURONIUM [Concomitant]
     Active Substance: ROCURONIUM BROMIDE
     Dosage: UNK, CONTINIOUS INFUSION
     Dates: start: 20200908, end: 20200909
  2. MIRALAX [Concomitant]
     Active Substance: POLYETHYLENE GLYCOL 3350
     Dosage: 17 G, BID
     Dates: start: 20200907, end: 20200909
  3. PYRIDOSTIGMINE [Concomitant]
     Active Substance: PYRIDOSTIGMINE
     Dosage: 120 MG, TID
     Route: 048
     Dates: start: 20200820, end: 20200909
  4. SODIUM BICARBONATE. [Concomitant]
     Active Substance: SODIUM BICARBONATE
     Dosage: 650 MG, BID
     Dates: start: 20200907, end: 20200909
  5. FENTANYL. [Concomitant]
     Active Substance: FENTANYL
     Dosage: UNK, CONTINIOUS INFUSION
     Dates: start: 20200827, end: 20200909
  6. AMIODARONE [Concomitant]
     Active Substance: AMIODARONE
     Dosage: 200 MG, QD
     Route: 048
     Dates: start: 20200829, end: 20200909
  7. DOCUSATE [Concomitant]
     Active Substance: DOCUSATE
     Dosage: 50 MG, BID
     Route: 048
     Dates: start: 20200830, end: 20200909
  8. ARTIFICIAL TEARS [Concomitant]
     Active Substance: GLYCERIN\HYPROMELLOSES\POLYETHYLENE GLYCOL 400
     Dosage: UNK, Q4HR
     Dates: start: 20200831, end: 20200909
  9. FOLAN [Concomitant]
     Active Substance: FOLIC ACID
     Dosage: UNK
     Route: 055
     Dates: start: 20200908, end: 20200909
  10. REMDESIVIR. [Suspect]
     Active Substance: REMDESIVIR
     Indication: COVID-19
     Dosage: 100 MG, QD
     Route: 042
     Dates: start: 20200820, end: 20200824
  11. HEPARIN [Concomitant]
     Active Substance: HEPARIN SODIUM
     Dosage: 5000 UNITS, Q8H
     Route: 058
     Dates: start: 20200907, end: 20200909
  12. LEVOTHYROXINE. [Concomitant]
     Active Substance: LEVOTHYROXINE
     Dosage: 100 MCG, QD
     Dates: start: 20200821, end: 20200909
  13. DULERA [Concomitant]
     Active Substance: FORMOTEROL FUMARATE DIHYDRATE\MOMETASONE FUROATE
     Dosage: 2 PUFF, BID
     Dates: start: 20200820, end: 20200909
  14. NOREPINEPHRINE. [Concomitant]
     Active Substance: NOREPINEPHRINE
     Dosage: UNK, CONTINIOUS INFUSION
     Dates: start: 20200902, end: 20200909
  15. CALCIUM GLUCONATE. [Concomitant]
     Active Substance: CALCIUM GLUCONATE
     Dosage: 1 G
     Route: 042
     Dates: start: 20200909
  16. LIDOCAINE. [Concomitant]
     Active Substance: LIDOCAINE
     Dosage: 4 % (TOPICAL PATCH)
     Route: 061
     Dates: start: 20200827, end: 20200909
  17. VASOPRESSIN. [Concomitant]
     Active Substance: VASOPRESSIN
     Dosage: UNK, CONTINOUS INFUSION
     Dates: start: 20200908, end: 20200909
  18. MIDAZOLAM. [Concomitant]
     Active Substance: MIDAZOLAM
     Dosage: UNK, CONTINIOUS INFUSION
     Dates: start: 20200827, end: 20200909
  19. PROTONIX [OMEPRAZOLE] [Concomitant]
     Active Substance: OMEPRAZOLE
     Dosage: 40 MG
     Route: 042
     Dates: start: 20200904, end: 20200909
  20. LOKELMA [Concomitant]
     Active Substance: SODIUM ZIRCONIUM CYCLOSILICATE
     Dosage: 10 G, QD
     Route: 048
     Dates: start: 20200907, end: 20200909
  21. ALBUTEROL HFA [Concomitant]
     Active Substance: ALBUTEROL SULFATE
     Dosage: 2 PUFF INHALED 4X/DAY
     Route: 055
     Dates: start: 20200825, end: 20200909

REACTIONS (7)
  - Multiple organ dysfunction syndrome [Not Recovered/Not Resolved]
  - Pulmonary embolism [Not Recovered/Not Resolved]
  - Gastrointestinal haemorrhage [Not Recovered/Not Resolved]
  - Embolism venous [Not Recovered/Not Resolved]
  - COVID-19 [Fatal]
  - Acute respiratory distress syndrome [Not Recovered/Not Resolved]
  - Renal failure [Not Recovered/Not Resolved]
